FAERS Safety Report 24686628 (Version 1)
Quarter: 2024Q4

REPORT INFORMATION
  Report Type: Spontaneous
  Country: CH (occurrence: CH)
  Receive Date: 20241202
  Receipt Date: 20241202
  Transmission Date: 20250115
  Serious: Yes (Hospitalization, Other)
  Sender: PFIZER
  Company Number: None

PATIENT
  Age: 80 Year
  Sex: Male

DRUGS (28)
  1. ALDACTONE [Suspect]
     Active Substance: SPIRONOLACTONE
     Dosage: 25 MG, 1X/DAY
     Dates: start: 20240510
  2. TORSEMIDE [Suspect]
     Active Substance: TORSEMIDE
     Dosage: 200 MG, 1X/DAY
     Dates: start: 20240618, end: 20240620
  3. TORSEMIDE [Suspect]
     Active Substance: TORSEMIDE
     Dosage: 100 MG, 1X/DAY
     Dates: start: 20240624, end: 20240721
  4. LASIX [Suspect]
     Active Substance: FUROSEMIDE
     Indication: Cardiac failure
     Dosage: 30MG/H
     Route: 040
     Dates: start: 202405, end: 20240617
  5. LASIX [Suspect]
     Active Substance: FUROSEMIDE
     Dosage: 10MG/H
     Route: 040
     Dates: start: 20240721, end: 20240723
  6. LASIX [Suspect]
     Active Substance: FUROSEMIDE
     Dosage: 15MG/H
     Route: 040
     Dates: start: 20240724, end: 20240803
  7. LASIX [Suspect]
     Active Substance: FUROSEMIDE
     Dosage: 17MG/H
     Route: 040
     Dates: start: 20240804, end: 20240804
  8. LASIX [Suspect]
     Active Substance: FUROSEMIDE
     Dosage: 20MG/H
     Route: 040
     Dates: start: 20240805, end: 20240806
  9. LASIX [Suspect]
     Active Substance: FUROSEMIDE
     Dosage: 25MG/H
     Route: 040
     Dates: start: 20240807, end: 20240807
  10. LASIX [Suspect]
     Active Substance: FUROSEMIDE
     Dosage: 30MG/H
     Route: 040
     Dates: start: 20240808
  11. ATORVASTATIN [Suspect]
     Active Substance: ATORVASTATIN
     Dosage: 40 MG, 1X/DAY
     Dates: start: 202403
  12. DAPAGLIFLOZIN [Suspect]
     Active Substance: DAPAGLIFLOZIN
     Dosage: 5 MG, 1X/DAY
     Dates: start: 20240530, end: 20240716
  13. DAPAGLIFLOZIN [Suspect]
     Active Substance: DAPAGLIFLOZIN
     Dosage: 10 MG, 1X/DAY
     Dates: start: 20240717
  14. ASCORBIC ACID\BIOTIN\CALCIUM PANTOTHENATE\CYANOCOBALAMIN\FOLIC ACID\NI [Suspect]
     Active Substance: ASCORBIC ACID\BIOTIN\CALCIUM PANTOTHENATE\CYANOCOBALAMIN\FOLIC ACID\NIACINAMIDE\PYRIDOXINE HYDROCHLO
     Dosage: 1 DF, 1X/DAY
     Dates: start: 202403, end: 202403
  15. ASCORBIC ACID\BIOTIN\CALCIUM PANTOTHENATE\CYANOCOBALAMIN\FOLIC ACID\NI [Suspect]
     Active Substance: ASCORBIC ACID\BIOTIN\CALCIUM PANTOTHENATE\CYANOCOBALAMIN\FOLIC ACID\NIACINAMIDE\PYRIDOXINE HYDROCHLO
     Dosage: 1 DF, 1X/DAY
     Dates: start: 202405, end: 202405
  16. ASCORBIC ACID\BIOTIN\CALCIUM PANTOTHENATE\CYANOCOBALAMIN\FOLIC ACID\NI [Suspect]
     Active Substance: ASCORBIC ACID\BIOTIN\CALCIUM PANTOTHENATE\CYANOCOBALAMIN\FOLIC ACID\NIACINAMIDE\PYRIDOXINE HYDROCHLO
     Dosage: 1 DF, 1X/DAY
     Dates: start: 202407
  17. METOLAZONE [Suspect]
     Active Substance: METOLAZONE
     Dosage: 2.5 MG, AS NEEDED (ON 11, 12, 22, 23, 24, 28 AND 31 JULY, THEN 01, 02, 05, 07, 13 AND 15 AUGUST)
  18. LANTUS [Concomitant]
     Active Substance: INSULIN GLARGINE
     Dosage: UNK
  19. SINTROM [Concomitant]
     Active Substance: ACENOCOUMAROL
     Dosage: UNK
  20. IRON POLYMALTOSE [Concomitant]
     Active Substance: IRON POLYMALTOSE
     Dosage: UNK
  21. LACTITOL [Concomitant]
     Active Substance: LACTITOL
     Dosage: UNK
  22. MELATONIN [Concomitant]
     Active Substance: MELATONIN
     Dosage: UNK
  23. METOPROLOL [Concomitant]
     Active Substance: METOPROLOL
     Dosage: UNK
  24. DAFALGAN [Concomitant]
     Active Substance: ACETAMINOPHEN
     Dosage: UNK
  25. POTASSIUM CHLORIDE [Concomitant]
     Active Substance: POTASSIUM CHLORIDE
     Dosage: UNK
  26. KCL [Concomitant]
     Active Substance: POTASSIUM CHLORIDE
     Dosage: UNK
  27. THIAMINE HYDROCHLORIDE [Concomitant]
     Active Substance: THIAMINE HYDROCHLORIDE
     Dosage: UNK
  28. CHOLECALCIFEROL [Concomitant]
     Active Substance: CHOLECALCIFEROL
     Dosage: UNK

REACTIONS (4)
  - Eczema [Not Recovered/Not Resolved]
  - Toxic skin eruption [Not Recovered/Not Resolved]
  - Pruritus [Recovering/Resolving]
  - Cardiac failure [Unknown]

NARRATIVE: CASE EVENT DATE: 20240715
